FAERS Safety Report 6889945-0 (Version None)
Quarter: 2010Q3

REPORT INFORMATION
  Report Type: 
  Country: None (occurrence: None)
  Receive Date: 20100730
  Receipt Date: 20080617
  Transmission Date: 20110219
  Serious: No
  Sender: FDA-Public Use
  Company Number: US-PFIZER INC-2008050586

PATIENT
  Sex: Female
  Weight: 84.37 kg

DRUGS (9)
  1. LIPITOR [Suspect]
     Dates: end: 20070101
  2. TRICOR [Suspect]
     Indication: BLOOD CHOLESTEROL INCREASED
     Route: 048
     Dates: start: 20070101, end: 20070101
  3. NIASPAN [Suspect]
     Dates: start: 20070101
  4. EZETIMIBE [Concomitant]
     Indication: BLOOD CHOLESTEROL INCREASED
     Route: 048
  5. ACARBOSE [Concomitant]
     Indication: DIABETES MELLITUS
     Route: 048
  6. LISINOPRIL [Concomitant]
     Indication: DIABETES MELLITUS
     Route: 048
  7. OSCAL [Concomitant]
     Indication: MINERAL SUPPLEMENTATION
     Route: 048
  8. ACETYLSALICYLIC ACID SRT [Concomitant]
     Route: 048
     Dates: start: 20070101
  9. DILTIAZEM [Concomitant]
     Indication: HEART RATE INCREASED
     Route: 048

REACTIONS (1)
  - MUSCLE SPASMS [None]
